FAERS Safety Report 7431244-2 (Version None)
Quarter: 2011Q2

REPORT INFORMATION
  Report Type: 
  Country: None (occurrence: None)
  Receive Date: 20110421
  Receipt Date: 20110412
  Transmission Date: 20111010
  Serious: Yes (Death)
  Sender: FDA-Public Use
  Company Number: DE-BAXTER-2011BH010595

PATIENT
  Age: 66 Year
  Sex: Male

DRUGS (3)
  1. PHYSIOSOL IN PLASTIC CONTAINER [Suspect]
     Indication: PERITONEAL DIALYSIS
     Route: 033
     Dates: start: 20091125, end: 20110324
  2. PHYSIOSOL IN PLASTIC CONTAINER [Suspect]
     Route: 033
     Dates: start: 20100812, end: 20110324
  3. EXTRANEAL [Suspect]
     Indication: PERITONEAL DIALYSIS
     Route: 033
     Dates: start: 20091125, end: 20110324

REACTIONS (3)
  - CARDIAC FAILURE [None]
  - PNEUMONIA [None]
  - INTESTINAL ISCHAEMIA [None]
